FAERS Safety Report 13266360 (Version 1)
Quarter: 2017Q1

REPORT INFORMATION
  Report Type: Spontaneous
  Country: US (occurrence: US)
  Receive Date: 20170223
  Receipt Date: 20170223
  Transmission Date: 20170428
  Serious: Yes (Other)
  Sender: FDA-Public Use
  Company Number: US-GLAXOSMITHKLINE-US2017025982

PATIENT
  Sex: Female

DRUGS (2)
  1. LAMICTAL [Suspect]
     Active Substance: LAMOTRIGINE
     Indication: DEPRESSION
     Dosage: 25 MG, QD
  2. LAMICTAL [Suspect]
     Active Substance: LAMOTRIGINE
     Dosage: 50 MG, QD
     Dates: start: 201702

REACTIONS (8)
  - Sjogren^s syndrome [Unknown]
  - Decreased appetite [Unknown]
  - Eye disorder [Unknown]
  - Dry mouth [Unknown]
  - Autoimmune disorder [Unknown]
  - Weight decreased [Unknown]
  - Drug ineffective [Unknown]
  - Product use issue [Unknown]
